FAERS Safety Report 16926813 (Version 3)
Quarter: 2020Q2

REPORT INFORMATION
  Report Type: Spontaneous
  Country: US (occurrence: US)
  Receive Date: 20191016
  Receipt Date: 20200513
  Transmission Date: 20200713
  Serious: No
  Sender: FDA-Public Use
  Company Number: US-SA-2019SA286281

PATIENT
  Sex: Female

DRUGS (9)
  1. CYCLOBENZAPRIN HCL [Concomitant]
     Active Substance: CYCLOBENZAPRINE HYDROCHLORIDE
  2. XERESE [Concomitant]
     Active Substance: ACYCLOVIR\HYDROCORTISONE
  3. CLOBETASOL PROPIONATE. [Concomitant]
     Active Substance: CLOBETASOL PROPIONATE
  4. IBUPROFEN. [Concomitant]
     Active Substance: IBUPROFEN
  5. DUPIXENT [Suspect]
     Active Substance: DUPILUMAB
     Indication: DERMATITIS ATOPIC
     Dosage: 300 MG, QOW
     Route: 058
     Dates: start: 201907
  6. ALTRENO [Concomitant]
     Active Substance: TRETINOIN
  7. DOXYCYCLINE HYCLATE [DOXYCYCLINE] [Concomitant]
  8. BUSPIRONE [Concomitant]
     Active Substance: BUSPIRONE HYDROCHLORIDE
  9. HYDROCODONE/ACETAMINOPHEN [Concomitant]
     Active Substance: ACETAMINOPHEN\HYDROCODONE

REACTIONS (6)
  - Paraesthesia [Unknown]
  - Product dose omission [Unknown]
  - Eczema [Unknown]
  - Alopecia [Unknown]
  - Injection site bruising [Unknown]
  - Product use issue [Unknown]
